FAERS Safety Report 7266715 (Version 2)
Quarter: 2014Q1

REPORT INFORMATION
  Report Type: Spontaneous
  Country: US (occurrence: None)
  Receive Date: 20100119
  Receipt Date: 20140127
  Transmission Date: 20141002
  Serious: Yes (Other)
  Sender: FDA-Public Use
  Company Number: 2010S1000046

PATIENT
  Age: 63 Year
  Sex: Female

DRUGS (1)
  1. SODIUM PHOSPHATE, DIBASIC [Suspect]
     Indication: COLONOSCOPY
     Dosage: ; PO
     Route: 048
     Dates: start: 20050517, end: 20050518

REACTIONS (2)
  - Renal disorder [None]
  - Nephropathy [None]
